FAERS Safety Report 23251223 (Version 1)
Quarter: 2023Q4

REPORT INFORMATION
  Report Type: Report from Study
  Country: US (occurrence: None)
  Receive Date: 20231201
  Receipt Date: 20231201
  Transmission Date: 20240110
  Serious: Yes (Death, Other)
  Sender: FDA-Public Use
  Company Number: 2023A272588

PATIENT
  Age: 28042 Day
  Sex: Male

DRUGS (1)
  1. LYNPARZA [Suspect]
     Active Substance: OLAPARIB
     Indication: Prostate cancer
     Route: 048
     Dates: start: 202308

REACTIONS (3)
  - Death [Fatal]
  - Cystitis [Unknown]
  - Sepsis [Unknown]

NARRATIVE: CASE EVENT DATE: 20231117
